FAERS Safety Report 12203252 (Version 1)
Quarter: 2016Q1

REPORT INFORMATION
  Report Type: Spontaneous
  Country: GB (occurrence: GB)
  Receive Date: 20160323
  Receipt Date: 20160323
  Transmission Date: 20160526
  Serious: Yes (Other)
  Sender: FDA-Public Use
  Company Number: GB-ROCHE-1584268

PATIENT
  Sex: Female

DRUGS (1)
  1. HERCEPTIN [Suspect]
     Active Substance: TRASTUZUMAB
     Indication: PRODUCT USED FOR UNKNOWN INDICATION
     Route: 058

REACTIONS (26)
  - Fatigue [Unknown]
  - Onychoclasis [Unknown]
  - Jaundice [Unknown]
  - Hypophagia [Unknown]
  - Dry mouth [Unknown]
  - Pruritus [Unknown]
  - Diarrhoea [Recovered/Resolved]
  - Dyspnoea exertional [Unknown]
  - Breast pain [Unknown]
  - Coeliac disease [Unknown]
  - Insomnia [Unknown]
  - Decreased appetite [Unknown]
  - Arthralgia [Unknown]
  - Biliary tract disorder [Unknown]
  - Dyspnoea [Unknown]
  - Neuropathy peripheral [Unknown]
  - Varicose vein [Unknown]
  - Malnutrition [Unknown]
  - Asthenia [Unknown]
  - Abdominal pain lower [Unknown]
  - Eye discharge [Unknown]
  - Weight decreased [Unknown]
  - Lower respiratory tract infection [Unknown]
  - Appetite disorder [Unknown]
  - Dry eye [Not Recovered/Not Resolved]
  - Muscle spasms [Unknown]
